FAERS Safety Report 7627601-1 (Version None)
Quarter: 2011Q3

REPORT INFORMATION
  Report Type: 
  Country: None (occurrence: None)
  Receive Date: 20110721
  Receipt Date: 20110711
  Transmission Date: 20111222
  Serious: Yes (Hospitalization, Other)
  Sender: FDA-Public Use
  Company Number: US-NAPPMUNDI-USA-2011-0065214

PATIENT
  Age: 58 Year
  Sex: Male

DRUGS (1)
  1. OXYCONTIN [Suspect]
     Indication: INTERVERTEBRAL DISC DEGENERATION

REACTIONS (28)
  - INSPIRATORY CAPACITY DECREASED [None]
  - SKIN LESION [None]
  - REACTION TO DRUG EXCIPIENTS [None]
  - RASH PRURITIC [None]
  - PRURITUS [None]
  - DYSPNOEA [None]
  - FORMICATION [None]
  - INSOMNIA [None]
  - RASH [None]
  - DRUG WITHDRAWAL SYNDROME [None]
  - DRUG EFFECT DELAYED [None]
  - DRUG EFFECT DECREASED [None]
  - DRUG INEFFECTIVE [None]
  - QUALITY OF LIFE DECREASED [None]
  - UNEVALUABLE EVENT [None]
  - PAIN [None]
  - SKIN DISORDER [None]
  - SKIN ATROPHY [None]
  - FUNGAL SKIN INFECTION [None]
  - BLISTER [None]
  - SKIN HAEMORRHAGE [None]
  - SKIN SWELLING [None]
  - FURUNCLE [None]
  - SKIN EXFOLIATION [None]
  - BREAKTHROUGH PAIN [None]
  - DRY SKIN [None]
  - FEELING OF BODY TEMPERATURE CHANGE [None]
  - SECRETION DISCHARGE [None]
